FAERS Safety Report 24982849 (Version 1)
Quarter: 2025Q1

REPORT INFORMATION
  Report Type: Spontaneous
  Country: FR (occurrence: FR)
  Receive Date: 20250218
  Receipt Date: 20250218
  Transmission Date: 20250409
  Serious: Yes (Other)
  Sender: B BRAUN
  Company Number: FR-B.Braun Medical Inc.-2171333

PATIENT
  Age: 70 Year
  Sex: Female

DRUGS (4)
  1. CEFOXITIN AND DEXTROSE [Suspect]
     Active Substance: CEFOXITIN SODIUM
     Indication: Infection
     Dates: start: 20241113
  2. METRONIDAZOLE [Suspect]
     Active Substance: METRONIDAZOLE
  3. ESKETAMINE [Suspect]
     Active Substance: ESKETAMINE
  4. CEFAZOLIN SODIUM [Suspect]
     Active Substance: CEFAZOLIN SODIUM

REACTIONS (1)
  - Hepatitis acute [Recovering/Resolving]
